FAERS Safety Report 6325605-2 (Version None)
Quarter: 2009Q3

REPORT INFORMATION
  Report Type: 
  Country: None (occurrence: None)
  Receive Date: 20090824
  Receipt Date: 20090723
  Transmission Date: 20100115
  Serious: No
  Sender: FDA-Public Use
  Company Number: US-ABBOTT-09P-163-0587051-00

PATIENT
  Sex: Male
  Weight: 104.42 kg

DRUGS (14)
  1. NIASPAN [Suspect]
     Indication: ANGIOPATHY
     Dates: start: 20090401, end: 20090401
  2. NIASPAN [Suspect]
     Dates: start: 20090401, end: 20090501
  3. NIASPAN [Suspect]
     Dates: start: 20090501, end: 20090601
  4. SIMCOR [Suspect]
     Indication: ANGIOPATHY
     Dosage: 500/20-1 IN 1 DAYS
     Dates: start: 20090701
  5. VERAPAMIL [Concomitant]
     Indication: HEART RATE IRREGULAR
  6. CYCLOBENZAPRINE [Concomitant]
     Indication: MUSCLE SPASMS
  7. ALLOPURINOL [Concomitant]
     Indication: GOUT
  8. FINASTERIDE [Concomitant]
     Indication: PROSTATE CANCER
  9. ACIPHEX [Concomitant]
     Indication: DRUG USE FOR UNKNOWN INDICATION
  10. PROBENECID [Concomitant]
     Indication: GOUT
  11. WARFARIN [Concomitant]
     Indication: PULMONARY EMBOLISM
  12. MOVE FREE [Concomitant]
     Indication: JOINT STIFFNESS
  13. ANTIBIOTICS [Concomitant]
     Indication: EXPOSURE TO CHEMICAL POLLUTION
  14. SLEEPING PILLS [Concomitant]
     Indication: SLEEP DISORDER

REACTIONS (3)
  - AMNESIA [None]
  - HOT FLUSH [None]
  - SENSORY DISTURBANCE [None]
